FAERS Safety Report 20503132 (Version 1)
Quarter: 2022Q1

REPORT INFORMATION
  Report Type: Report from Study
  Country: US (occurrence: None)
  Receive Date: 20220222
  Receipt Date: 20220222
  Transmission Date: 20220423
  Serious: Yes (Hospitalization)
  Sender: FDA-Public Use
  Company Number: 2022A075707

PATIENT
  Sex: Female
  Weight: 76.2 kg

DRUGS (12)
  1. CALQUENCE [Suspect]
     Active Substance: ACALABRUTINIB
     Indication: Chronic lymphocytic leukaemia
     Route: 048
     Dates: start: 20210302
  2. LYRICA [Concomitant]
     Active Substance: PREGABALIN
  3. COLCYRS [Concomitant]
     Dosage: 0.6MG UNKNOWN
     Route: 065
  4. DOXYCYCLINE [Concomitant]
     Active Substance: DOXYCYCLINE
     Dosage: 20.0MG UNKNOWN
  5. GARLIC [Concomitant]
     Active Substance: GARLIC
     Dosage: 2.0MG UNKNOWN
  6. LEVOXYL [Concomitant]
     Active Substance: LEVOTHYROXINE SODIUM
     Dosage: 175.0MG UNKNOWN
  7. SINGULAIR [Concomitant]
     Active Substance: MONTELUKAST SODIUM
     Dosage: 10.0MG UNKNOWN
  8. SKELAXIN [Concomitant]
     Active Substance: METAXALONE
     Dosage: 800.0MG UNKNOWN
  9. TRAMADOL [Concomitant]
     Active Substance: TRAMADOL
     Dosage: 300.0MG UNKNOWN
  10. VITAMIN D [Concomitant]
     Active Substance: VITAMIN D NOS
     Dosage: 2000 UNITS
  11. ZITHROMAX [Concomitant]
     Active Substance: AZITHROMYCIN DIHYDRATE
     Dosage: 250.0MG UNKNOWN
  12. ZONEGRAN [Concomitant]
     Active Substance: ZONISAMIDE
     Dosage: 100.0MG UNKNOWN

REACTIONS (2)
  - Dehydration [Not Recovered/Not Resolved]
  - Neuropathy peripheral [Not Recovered/Not Resolved]
